FAERS Safety Report 6330505-8 (Version None)
Quarter: 2009Q3

REPORT INFORMATION
  Report Type: 
  Country: None (occurrence: None)
  Receive Date: 20090827
  Receipt Date: 20090309
  Transmission Date: 20100115
  Serious: No
  Sender: FDA-Public Use
  Company Number: A0772334A

PATIENT
  Age: 49 Year
  Sex: Male

DRUGS (1)
  1. ACYCLOVIR [Suspect]
     Indication: GENITAL HERPES
     Dosage: 400MG PER DAY
     Route: 048
     Dates: start: 20081001, end: 20081201

REACTIONS (2)
  - SKIN DISCOLOURATION [None]
  - URTICARIA [None]
